FAERS Safety Report 6227497-9 (Version None)
Quarter: 2009Q2

REPORT INFORMATION
  Report Type: 
  Country: None (occurrence: None)
  Receive Date: 20090612
  Receipt Date: 20090609
  Transmission Date: 20091009
  Serious: Yes (Death)
  Sender: FDA-Public Use
  Company Number: PHHY2009JP10218

PATIENT
  Sex: Female

DRUGS (6)
  1. DIOVAN T30230+TAB+HY [Suspect]
     Indication: HYPERTENSION
     Dosage: 80 MG, QD
     Route: 048
     Dates: start: 20071025, end: 20071128
  2. NORVASC [Concomitant]
     Dosage: 5 MG/DAY
     Route: 048
     Dates: start: 20071025, end: 20071028
  3. OMEPRAZOLE [Concomitant]
     Dosage: 20 MG/DAY
     Route: 048
     Dates: start: 20071025
  4. ASPIRIN [Concomitant]
     Dosage: 100 MG/DAY
     Route: 048
     Dates: start: 20071025
  5. DIGOSIN [Concomitant]
     Dosage: 0.125 MG/DAY
     Route: 048
     Dates: start: 20071025
  6. DIART [Concomitant]
     Dosage: 30 MG/DAY
     Route: 048
     Dates: start: 20071025

REACTIONS (1)
  - DEATH [None]
